FAERS Safety Report 13323969 (Version 1)
Quarter: 2017Q1

REPORT INFORMATION
  Report Type: Spontaneous
  Country: US (occurrence: US)
  Receive Date: 20170310
  Receipt Date: 20170310
  Transmission Date: 20170428
  Serious: No
  Sender: FDA-Public Use
  Company Number: GXBR2016US003616

PATIENT
  Sex: Female

DRUGS (1)
  1. LABETALOL HYDROCHLORIDE TABLETS, USP [Suspect]
     Active Substance: LABETALOL HYDROCHLORIDE
     Indication: HYPERTENSION
     Dosage: UNK DF, UNK
     Route: 065

REACTIONS (2)
  - Amphetamines positive [Unknown]
  - Maternal exposure during pregnancy [Unknown]
